FAERS Safety Report 6291104-X (Version None)
Quarter: 2009Q3

REPORT INFORMATION
  Report Type: 
  Country: None (occurrence: None)
  Receive Date: 20090730
  Receipt Date: 20090724
  Transmission Date: 20100115
  Serious: Yes (Other)
  Sender: FDA-Public Use
  Company Number: A0798594A

PATIENT
  Age: 61 Year
  Sex: Male

DRUGS (10)
  1. ADVAIR HFA [Suspect]
     Indication: ASTHMA
     Route: 055
     Dates: start: 20010101, end: 20070101
  2. FLOVENT [Suspect]
     Indication: ASTHMA
     Dosage: 220MCG TWICE PER DAY
     Route: 055
     Dates: start: 19970101, end: 20010101
  3. DIFLUCAN [Concomitant]
  4. SEREVENT [Concomitant]
  5. ALBUTEROL NEBULIZED [Concomitant]
  6. HYDROCHLOROTHIAZIDE [Concomitant]
  7. NEXIUM [Concomitant]
  8. SINGULAIR [Concomitant]
  9. QVAR 40 [Concomitant]
  10. PREDNISONE [Concomitant]

REACTIONS (3)
  - ASTHMA [None]
  - GENITAL INFECTION FUNGAL [None]
  - ORAL CANDIDIASIS [None]
